FAERS Safety Report 5677805-2 (Version None)
Quarter: 2008Q1

REPORT INFORMATION
  Report Type: 
  Country: None (occurrence: None)
  Receive Date: 20080318
  Receipt Date: 20080304
  Transmission Date: 20080703
  Serious: Yes (Hospitalization)
  Sender: FDA-Public Use
  Company Number: 2007-03905

PATIENT
  Age: 54 Year
  Sex: Male
  Weight: 60 kg

DRUGS (15)
  1. VELCADE [Suspect]
     Indication: MULTIPLE MYELOMA
     Dosage: 2.20 MG, INTRAVENOUS
     Route: 042
     Dates: start: 20071112, end: 20071115
  2. DECADRON [Suspect]
     Indication: MULTIPLE MYELOMA
     Dosage: 20.00 MG, ORAL
     Route: 048
     Dates: start: 20071112, end: 20071116
  3. DEXAMETHASONE TAB [Suspect]
     Indication: MULTIPLE MYELOMA
     Dosage: 20.00 MG, INTRAVENOUS
     Route: 042
     Dates: start: 20071112, end: 20071116
  4. RABEPRAZOLE SODIUM [Concomitant]
  5. ITRACONAZOLE [Concomitant]
  6. PROGRAF [Concomitant]
  7. LEVOFLOXACIN [Concomitant]
  8. BAKTAR (SULFAMETHOXAZOLE, TRIMETHOPRIM) [Concomitant]
  9. ADONA (CARBAZOCHROME SODIUM SULFONATE) [Concomitant]
  10. TRANSAMIN (TRANEXAMIC ACID) [Concomitant]
  11. VORICONAZOLE (VORICONAZOLE) [Concomitant]
  12. KYTRIL [Concomitant]
  13. ROPION (GLURBIPROFEN AXETIL) [Concomitant]
  14. SOLU-CORTEF [Concomitant]
  15. ATARAX [Concomitant]

REACTIONS (12)
  - BACK PAIN [None]
  - BLOOD CHLORIDE DECREASED [None]
  - BLOOD GLUCOSE INCREASED [None]
  - DISEASE RECURRENCE [None]
  - GRAFT VERSUS HOST DISEASE [None]
  - HAEMORRHAGIC DIATHESIS [None]
  - HEPATIC FUNCTION ABNORMAL [None]
  - HERPES ZOSTER [None]
  - INTERSTITIAL LUNG DISEASE [None]
  - RENAL IMPAIRMENT [None]
  - THROMBOTIC MICROANGIOPATHY [None]
  - THROMBOTIC THROMBOCYTOPENIC PURPURA [None]
